FAERS Safety Report 13855051 (Version 1)
Quarter: 2017Q3

REPORT INFORMATION
  Report Type: Spontaneous
  Country: US (occurrence: US)
  Receive Date: 20170810
  Receipt Date: 20170810
  Transmission Date: 20171127
  Serious: Yes (Death)
  Sender: FDA-Public Use
  Company Number: US-ASTELLAS-2017US032033

PATIENT
  Sex: Male
  Weight: 130 kg

DRUGS (1)
  1. TARCEVA [Suspect]
     Active Substance: ERLOTINIB HYDROCHLORIDE
     Indication: MALIGNANT MELANOMA
     Dosage: 20 MG, OTHER (THREE TABLETS BY MOUTH FOR 21 DAYS ON THEN 7 DAYS)
     Route: 048
     Dates: start: 20170608, end: 20170803

REACTIONS (1)
  - Death [Fatal]
